FAERS Safety Report 4825918-7 (Version None)
Quarter: 2005Q4

REPORT INFORMATION
  Report Type: 
  Country: None (occurrence: None)
  Receive Date: 20051111
  Receipt Date: 20051103
  Transmission Date: 20060501
  Serious: Yes (Hospitalization)
  Sender: FDA-Public Use
  Company Number: FR-JNJFOC-20051102304

PATIENT
  Sex: Female

DRUGS (1)
  1. IXPRIM [Suspect]
     Route: 048

REACTIONS (2)
  - DYSKINESIA [None]
  - HYPERREFLEXIA [None]
